FAERS Safety Report 21237103 (Version 1)
Quarter: 2022Q3

REPORT INFORMATION
  Report Type: Spontaneous
  Country: US (occurrence: US)
  Receive Date: 20220822
  Receipt Date: 20220822
  Transmission Date: 20221026
  Serious: Yes (Other)
  Sender: FDA-Public Use
  Company Number: US-CIPLA LTD.-2022US04955

PATIENT
  Age: 15 Year
  Sex: Male

DRUGS (4)
  1. LEVOFLOXACIN [Suspect]
     Active Substance: LEVOFLOXACIN
     Indication: Polyomavirus viraemia
     Dosage: UNK
     Route: 065
  2. CIDOFOVIR [Suspect]
     Active Substance: CIDOFOVIR
     Indication: Polyomavirus viraemia
     Dosage: 1 MG/KG/DOSE, UNK
     Route: 065
  3. PROBENECID [Suspect]
     Active Substance: PROBENECID
     Indication: Polyomavirus viraemia
     Dosage: UNK
     Route: 065
  4. LEFLUNOMIDE [Suspect]
     Active Substance: LEFLUNOMIDE
     Indication: Polyomavirus viraemia
     Dosage: LOADING DOSE OF 100 MG DAILY ? 3 DAYS, THEN 40MG DAILY
     Route: 065

REACTIONS (2)
  - Cystitis haemorrhagic [Recovered/Resolved]
  - Treatment noncompliance [Unknown]
